FAERS Safety Report 9757073 (Version 2)
Quarter: 2013Q4

REPORT INFORMATION
  Report Type: Spontaneous
  Country: JP (occurrence: JP)
  Receive Date: 20131213
  Receipt Date: 20131219
  Transmission Date: 20140711
  Serious: Yes (Hospitalization)
  Sender: FDA-Public Use
  Company Number: JP-B.I. PHARMACEUTICALS,INC./RIDGEFIELD-2013-BI-42132YA

PATIENT
  Age: 89 Year
  Sex: Male

DRUGS (4)
  1. HARNAL (TAMSULOSIN) ORODISPERSABLE CR [Suspect]
     Indication: BENIGN PROSTATIC HYPERPLASIA
     Dosage: 0.2 MG
     Route: 048
     Dates: start: 2011
  2. NEODOPASTON (CARBIDOPA, LEVODOPA) [Concomitant]
     Indication: PARKINSON^S DISEASE
  3. DEPAKENE-R (VALPROATE SODIUM) [Concomitant]
     Dosage: SUSTAINED RELEASE TABLET
  4. CONIEL (BENIDIPINE HYDROCHLORIDE) [Concomitant]

REACTIONS (1)
  - Orthostatic hypotension [Recovered/Resolved]
